FAERS Safety Report 9170236 (Version 1)
Quarter: 2013Q1

REPORT INFORMATION
  Report Type: Spontaneous
  Country: BR (occurrence: BR)
  Receive Date: 20130319
  Receipt Date: 20130319
  Transmission Date: 20140127
  Serious: Yes (Death, Hospitalization)
  Sender: FDA-Public Use
  Company Number: PHHY2013BR026472

PATIENT
  Sex: Female

DRUGS (2)
  1. FORASEQ [Suspect]
     Indication: FATIGUE
     Dosage: 1 CAPSULE OF EACH TREATMENT THREE TIMES A DAY
     Dates: start: 2000
  2. ALENIA [Suspect]
     Indication: FATIGUE
     Dosage: 2 CAPSULES PER DAY
     Dates: start: 2000

REACTIONS (1)
  - Fatigue [Fatal]
